FAERS Safety Report 23787459 (Version 5)
Quarter: 2024Q3

REPORT INFORMATION
  Report Type: Spontaneous
  Country: US (occurrence: US)
  Receive Date: 20240426
  Receipt Date: 20240925
  Transmission Date: 20241017
  Serious: No
  Sender: PFIZER
  Company Number: US-PFIZER INC-202400081961

PATIENT
  Age: 4 Month
  Sex: Female
  Weight: 5.466 kg

DRUGS (3)
  1. GENOTROPIN [Suspect]
     Active Substance: SOMATROPIN
     Dosage: 0.1 MG, DAILY
  2. GENOTROPIN [Suspect]
     Active Substance: SOMATROPIN
     Dosage: 0.1MG INJECTED EVERY DAY (MORNING)
  3. HYDROCORTISONE [Concomitant]
     Active Substance: HYDROCORTISONE\HYDROCORTISONE ACETATE
     Indication: Steroid therapy
     Dosage: 0.5 ML, 3X/DAY (1 DOSE MORNING, MIDDLE OF THE NIGHT AND AT 6:00PM THROUGH HER GTUBE)
     Route: 048
     Dates: start: 202311

REACTIONS (3)
  - Drug dose omission by device [Unknown]
  - Device leakage [Unknown]
  - Wrong technique in device usage process [Unknown]
